FAERS Safety Report 8428939 (Version 9)
Quarter: 2015Q4

REPORT INFORMATION
  Report Type: Report from Study
  Country: CA (occurrence: CA)
  Receive Date: 20120227
  Receipt Date: 20151231
  Transmission Date: 20160305
  Serious: Yes (Other)
  Sender: FDA-Public Use
  Company Number: PHHY2012CA010506

PATIENT
  Age: 62 Year
  Sex: Female

DRUGS (4)
  1. SANDOSTATIN LAR DEPOT [Suspect]
     Active Substance: OCTREOTIDE ACETATE
     Indication: ANGIODYSPLASIA
     Dosage: 10 MG, QMO
     Route: 030
     Dates: start: 20120131
  2. VITAMIN B12 [Concomitant]
     Active Substance: CYANOCOBALAMIN
     Indication: PRODUCT USED FOR UNKNOWN INDICATION
     Route: 065
  3. VENOFER [Concomitant]
     Active Substance: IRON SUCROSE
     Indication: PRODUCT USED FOR UNKNOWN INDICATION
     Dosage: UNK
     Route: 065
     Dates: start: 20120523
  4. IRON [Concomitant]
     Active Substance: IRON
     Indication: ANAEMIA
     Route: 042

REACTIONS (25)
  - Blood pressure decreased [Unknown]
  - Vision blurred [Unknown]
  - Syncope [Unknown]
  - Hyperphagia [Unknown]
  - Feeling abnormal [Unknown]
  - Injection site pain [Unknown]
  - Cardiac disorder [Unknown]
  - Pallor [Unknown]
  - Quality of life decreased [Unknown]
  - Haemoglobin increased [Unknown]
  - Product use issue [Unknown]
  - Hunger [Unknown]
  - Haemoglobin decreased [Unknown]
  - Malaise [Unknown]
  - Head discomfort [Unknown]
  - Paraesthesia [Unknown]
  - Facial pain [Unknown]
  - Pain [Unknown]
  - Dizziness [Unknown]
  - Heart rate increased [Unknown]
  - Palpitations [Unknown]
  - Visual impairment [Unknown]
  - Dyspnoea [Unknown]
  - Multiple sclerosis [Unknown]
  - Constipation [Unknown]

NARRATIVE: CASE EVENT DATE: 20120131
